APPROVED DRUG PRODUCT: NALBUPHINE
Active Ingredient: NALBUPHINE HYDROCHLORIDE
Strength: 10MG/ML (10MG/ML)
Dosage Form/Route: SOLUTION;INTRAMUSCULAR, INTRAVENOUS, SUBCUTANEOUS
Application: A070751 | Product #001
Applicant: ABRAXIS PHARMACEUTICAL PRODUCTS
Approved: Jul 2, 1986 | RLD: No | RS: No | Type: DISCN